FAERS Safety Report 5928844-5 (Version None)
Quarter: 2008Q4

REPORT INFORMATION
  Report Type: 
  Country: None (occurrence: None)
  Receive Date: 20081021
  Receipt Date: 20081010
  Transmission Date: 20090506
  Serious: Yes (Other)
  Sender: FDA-Public Use
  Company Number: 20400

PATIENT
  Age: 74 Year
  Sex: Female

DRUGS (10)
  1. FLUDARABINE PHOSPHATE [Suspect]
     Indication: B-CELL SMALL LYMPHOCYTIC LYMPHOMA REFRACTORY
     Dates: start: 20080101, end: 20080101
  2. ALEMTUZUMAB [Suspect]
     Indication: B-CELL SMALL LYMPHOCYTIC LYMPHOMA REFRACTORY
     Dosage: 10 MG FREQ
     Dates: start: 20080826, end: 20080826
  3. ALEMTUZUMAB [Suspect]
     Indication: B-CELL SMALL LYMPHOCYTIC LYMPHOMA REFRACTORY
     Dosage: 30 MG FREQ
     Dates: start: 20080827, end: 20080827
  4. ALEMTUZUMAB [Suspect]
     Indication: B-CELL SMALL LYMPHOCYTIC LYMPHOMA REFRACTORY
     Dosage: 3 MG FREQ
     Dates: start: 20080828, end: 20080828
  5. ACYCLOVIR [Concomitant]
  6. CHLORAMBUCIL [Concomitant]
  7. CO-TRIMOXAZOLE [Concomitant]
  8. CYCLOPHOSPHAMIDE [Concomitant]
  9. DEXAMETHASONE [Concomitant]
  10. PREDNISOLONE [Concomitant]

REACTIONS (4)
  - CONDITION AGGRAVATED [None]
  - LYMPHOPENIA [None]
  - NO THERAPEUTIC RESPONSE [None]
  - THROMBOCYTOPENIA [None]
